FAERS Safety Report 22271427 (Version 1)
Quarter: 2023Q2

REPORT INFORMATION
  Report Type: Report from Study
  Country: CO (occurrence: CO)
  Receive Date: 20230501
  Receipt Date: 20230501
  Transmission Date: 20230722
  Serious: Yes (Death)
  Sender: FDA-Public Use
  Company Number: CO-ABBVIE-4746229

PATIENT
  Age: 25 Year
  Sex: Female

DRUGS (1)
  1. VENCLEXTA [Suspect]
     Active Substance: VENETOCLAX
     Indication: Acute myeloid leukaemia
     Dosage: 400 MILLIGRAM, FORM STRENGTH 100 MILLIGRAM
     Route: 048
     Dates: start: 20230107, end: 20230411

REACTIONS (1)
  - Death [Fatal]

NARRATIVE: CASE EVENT DATE: 20230401
